FAERS Safety Report 5212531-5 (Version None)
Quarter: 2007Q1

REPORT INFORMATION
  Report Type: 
  Country: None (occurrence: None)
  Receive Date: 20070118
  Receipt Date: 20070115
  Transmission Date: 20070707
  Serious: Yes (Hospitalization)
  Sender: FDA-Public Use
  Company Number: SE-MERCK-0701SWE00013

PATIENT
  Age: 4 Year
  Sex: Male

DRUGS (3)
  1. SINGULAIR [Suspect]
     Indication: ASTHMA
     Route: 048
     Dates: start: 20060327, end: 20061011
  2. AIROMIR [Concomitant]
     Indication: ASTHMA
  3. PULMICORT [Concomitant]
     Indication: ASTHMA

REACTIONS (2)
  - THIRST [None]
  - URINE OUTPUT INCREASED [None]
